FAERS Safety Report 5119562-4 (Version None)
Quarter: 2006Q3

REPORT INFORMATION
  Report Type: 
  Country: None (occurrence: None)
  Receive Date: 20060928
  Receipt Date: 20060914
  Transmission Date: 20061208
  Serious: Yes (Hospitalization)
  Sender: FDA-Public Use
  Company Number: 2006-04957

PATIENT
  Sex: Male

DRUGS (5)
  1. CLONAZEPAM [Suspect]
     Indication: DRUG USE FOR UNKNOWN INDICATION
     Dosage: 2 TABLET, BID, ORAL
     Route: 048
  2. CHLORPROMAZINE [Suspect]
     Indication: DRUG USE FOR UNKNOWN INDICATION
     Dosage: 1200 MG, DAILY, UNKNOWN
     Dates: end: 20060910
  3. LAMICTAL [Concomitant]
  4. NASONEX [Concomitant]
  5. SINGULAIN ^MSD^ (MONTELUKAS SODIUM) [Concomitant]

REACTIONS (5)
  - AGGRESSION [None]
  - ANTIPSYCHOTIC DRUG LEVEL INCREASED [None]
  - DRUG SCREEN FALSE POSITIVE [None]
  - DRUG SCREEN POSITIVE [None]
  - INCORRECT DOSE ADMINISTERED [None]
